FAERS Safety Report 16906266 (Version 1)
Quarter: 2019Q4

REPORT INFORMATION
  Report Type: Report from Study
  Country: None (occurrence: DE)
  Receive Date: 20191011
  Receipt Date: 20191011
  Transmission Date: 20200122
  Serious: Yes (Death, Hospitalization)
  Sender: FDA-Public Use
  Company Number: DE-ABBVIE-19K-062-2958445-00

PATIENT
  Age: 83 Year
  Sex: Female

DRUGS (1)
  1. DUODOPA [Suspect]
     Active Substance: CARBIDOPA\LEVODOPA
     Indication: PARKINSON^S DISEASE
     Dosage: MD: 7 ML; CRD: 1.4 ML/H; ED: 0.7 ML?20 MG/ML 5 MG/ML
     Route: 050
     Dates: start: 20190515

REACTIONS (4)
  - Cardiac failure [Fatal]
  - Cerebrovascular accident [Not Recovered/Not Resolved]
  - General physical health deterioration [Not Recovered/Not Resolved]
  - Circulatory collapse [Fatal]

NARRATIVE: CASE EVENT DATE: 2019
